FAERS Safety Report 9322149 (Version 2)
Quarter: 2013Q2

REPORT INFORMATION
  Report Type: Report from Study
  Country: US (occurrence: US)
  Receive Date: 20130531
  Receipt Date: 20130614
  Transmission Date: 20140414
  Serious: Yes (Hospitalization)
  Sender: FDA-Public Use
  Company Number: US-ACTELION-A-NJ2012-76296

PATIENT
  Age: 30 Year
  Sex: Female

DRUGS (2)
  1. TRACLEER [Suspect]
     Indication: PULMONARY ARTERIAL HYPERTENSION
     Dosage: UNK
     Route: 048
     Dates: start: 20120829, end: 20130603
  2. LOVENOX [Concomitant]

REACTIONS (2)
  - Thromboembolectomy [Recovered/Resolved]
  - Partial lung resection [Unknown]
